FAERS Safety Report 23747704 (Version 3)
Quarter: 2024Q2

REPORT INFORMATION
  Report Type: Spontaneous
  Country: US (occurrence: US)
  Receive Date: 20240416
  Receipt Date: 20240529
  Transmission Date: 20240716
  Serious: No
  Sender: FDA-Public Use
  Company Number: US-PFIZER INC-202400079110

PATIENT
  Age: 13 Year
  Sex: Male

DRUGS (1)
  1. GENOTROPIN [Suspect]
     Active Substance: SOMATROPIN
     Dosage: 1.2 MG, DAILY
     Dates: start: 202402

REACTIONS (3)
  - Drug dose omission by device [Unknown]
  - Device mechanical issue [Unknown]
  - Device use error [Unknown]
